FAERS Safety Report 5566918-1 (Version None)
Quarter: 2007Q4

REPORT INFORMATION
  Report Type: 
  Country: None (occurrence: None)
  Receive Date: 20071219
  Receipt Date: 20070205
  Transmission Date: 20080405
  Serious: No
  Sender: FDA-Public Use
  Company Number: US-BRISTOL-MYERS SQUIBB COMPANY-13669411

PATIENT
  Age: 79 Year
  Sex: Female
  Weight: 63 kg

DRUGS (7)
  1. PRAVACHOL [Suspect]
     Dates: end: 20070203
  2. FUROSEMIDE [Concomitant]
  3. COREG [Concomitant]
  4. SYNTHROID [Concomitant]
  5. PLAVIX [Concomitant]
     Dates: start: 20060401
  6. GLUCOTROL [Concomitant]
  7. ZANTAC [Concomitant]

REACTIONS (2)
  - DYSPNOEA [None]
  - URINE OUTPUT DECREASED [None]
